FAERS Safety Report 9758096 (Version 3)
Quarter: 2015Q4

REPORT INFORMATION
  Report Type: Spontaneous
  Country: US (occurrence: US)
  Receive Date: 20131216
  Receipt Date: 20151210
  Transmission Date: 20160305
  Serious: Yes (Other)
  Sender: FDA-Public Use
  Company Number: US-BAYER-2013-152417

PATIENT
  Age: 31 Year
  Sex: Female
  Weight: 160.9 kg

DRUGS (1)
  1. MIRENA [Suspect]
     Active Substance: LEVONORGESTREL
     Indication: CONTRACEPTION
     Dosage: 20 MCG/24HR, CONT
     Route: 015
     Dates: start: 2005, end: 20131126

REACTIONS (6)
  - Device use error [Recovered/Resolved]
  - Device dislocation [Recovered/Resolved]
  - Pelvic pain [None]
  - Embedded device [Recovered/Resolved]
  - Device dislocation [None]
  - Device difficult to use [Recovered/Resolved]

NARRATIVE: CASE EVENT DATE: 2010
